FAERS Safety Report 4852944-4 (Version None)
Quarter: 2005Q4

REPORT INFORMATION
  Report Type: 
  Country: None (occurrence: None)
  Receive Date: 20051212
  Receipt Date: 20051201
  Transmission Date: 20060501
  Serious: Yes (Other)
  Sender: FDA-Public Use
  Company Number: 2005-12-0017

PATIENT
  Age: 40 Year
  Sex: Male
  Weight: 70 kg

DRUGS (2)
  1. VIRAFERONPEG (PEG INTERFERON ALFA-2B RECOMBINANT) RDIPEN (LIKE PEG-INT [Suspect]
     Indication: HEPATITIS C
     Dosage: 108 UG QWK, SUBCUTANEOUS
     Route: 058
  2. REBETOL (RIBAVERIN) CAPSULES [Suspect]
     Indication: HEPATITIS C
     Dosage: 1000 MG QD, ORAL
     Route: 048

REACTIONS (1)
  - PORPHYRIA [None]
